FAERS Safety Report 17073630 (Version 1)
Quarter: 2019Q4

REPORT INFORMATION
  Report Type: Spontaneous
  Country: JP (occurrence: JP)
  Receive Date: 20191126
  Receipt Date: 20191126
  Transmission Date: 20200122
  Serious: Yes (Hospitalization, Other)
  Sender: FDA-Public Use
  Company Number: JP-ACTELION-A-CH2019-198489

PATIENT
  Age: 27 Year
  Sex: Male

DRUGS (1)
  1. EPOPROSTENOL SODIUM. [Suspect]
     Active Substance: EPOPROSTENOL SODIUM
     Indication: PULMONARY ARTERIAL HYPERTENSION
     Route: 042

REACTIONS (6)
  - Angina pectoris [Unknown]
  - Coronary artery stenosis [Unknown]
  - Arterial graft [Unknown]
  - Lung transplant [Unknown]
  - Pulmonary artery aneurysm [Unknown]
  - Coronary artery compression [Unknown]
